FAERS Safety Report 6644629-9 (Version None)
Quarter: 2010Q1

REPORT INFORMATION
  Report Type: 
  Country: None (occurrence: None)
  Receive Date: 20100317
  Receipt Date: 20100304
  Transmission Date: 20100710
  Serious: Yes (Hospitalization)
  Sender: FDA-Public Use
  Company Number: 006498

PATIENT
  Sex: Male

DRUGS (6)
  1. KEPPRA [Suspect]
     Indication: EPILEPSY
     Dosage: (250 MG BID ORAL)
     Route: 048
     Dates: start: 20091207, end: 20091209
  2. LAMICAL [Concomitant]
  3. LYRICA [Concomitant]
  4. FALITHROM [Concomitant]
  5. RAMIPRIL [Concomitant]
  6. HYDROCHLOROTHIAZIDE [Concomitant]

REACTIONS (1)
  - ERYTHEMA [None]
